FAERS Safety Report 5075343-1 (Version None)
Quarter: 2006Q3

REPORT INFORMATION
  Report Type: 
  Country: None (occurrence: None)
  Receive Date: 20060809
  Receipt Date: 20051102
  Transmission Date: 20061208
  Serious: No
  Sender: FDA-Public Use
  Company Number: US-AMGEN-US156485

PATIENT
  Sex: Male

DRUGS (2)
  1. EPOGEN [Suspect]
     Indication: DIALYSIS
     Dates: start: 20000101
  2. HECTORAL [Concomitant]
     Route: 065

REACTIONS (2)
  - HAEMOGLOBIN DECREASED [None]
  - SKIN INFLAMMATION [None]
